FAERS Safety Report 8782679 (Version 2)
Quarter: 2012Q4

REPORT INFORMATION
  Report Type: 
  Country: US (occurrence: US)
  Receive Date: 20120913
  Receipt Date: 20121226
  Transmission Date: 20130627
  Serious: No
  Sender: FDA-Public Use
  Company Number: US-VERTEX PHARMACEUTICAL INC.-AE-2012-010203

PATIENT
  Age: 53 None
  Sex: Male

DRUGS (4)
  1. VX-950 (TELAPREVIR) [Suspect]
     Indication: HEPATITIS C
     Dosage: UNK
     Route: 048
     Dates: start: 20120210, end: 20120512
  2. PEGASYS [Suspect]
     Indication: HEPATITIS C
     Dosage: UNK
     Dates: start: 20120210
  3. RIBAVIRIN [Suspect]
     Indication: HEPATITIS C
     Dosage: UNK
     Dates: start: 20120210
  4. RIBAVIRIN [Suspect]
     Dosage: 800 mg, qd
     Route: 048

REACTIONS (11)
  - Emotional disorder [Not Recovered/Not Resolved]
  - Mood swings [Unknown]
  - White blood cell count decreased [Not Recovered/Not Resolved]
  - Bone pain [Unknown]
  - Myalgia [Unknown]
  - Arthralgia [Unknown]
  - Pain [Not Recovered/Not Resolved]
  - Irritability [Unknown]
  - Fatigue [Not Recovered/Not Resolved]
  - Anaemia [Not Recovered/Not Resolved]
  - Pruritus [Unknown]
